FAERS Safety Report 9456554 (Version 2)
Quarter: 2013Q4

REPORT INFORMATION
  Report Type: Spontaneous
  Country: FR (occurrence: FR)
  Receive Date: 20130813
  Receipt Date: 20131003
  Transmission Date: 20140711
  Serious: Yes (Other)
  Sender: FDA-Public Use
  Company Number: FR-ALLERGAN-1311950US

PATIENT
  Age: 72 Year
  Sex: Male

DRUGS (5)
  1. COMBIGAN [Suspect]
     Indication: GLAUCOMA
     Dosage: TWICE DAILY
     Route: 047
     Dates: start: 2006
  2. SUFENTANIL [Concomitant]
     Indication: GENERAL ANAESTHESIA
  3. PROPOFOL [Concomitant]
     Indication: GENERAL ANAESTHESIA
  4. AZOPT [Concomitant]
     Indication: GLAUCOMA
     Dosage: 2 GTT, UNK
     Route: 047
     Dates: start: 2007
  5. LUMIGAN [Concomitant]
     Indication: GLAUCOMA
     Dosage: 1 GTT, UNK
     Route: 047
     Dates: start: 2007

REACTIONS (6)
  - Retinal detachment [Unknown]
  - Visual acuity reduced [Not Recovered/Not Resolved]
  - Weight decreased [Not Recovered/Not Resolved]
  - Insomnia [Not Recovered/Not Resolved]
  - Depression [Not Recovered/Not Resolved]
  - Conjunctival hyperaemia [Unknown]
